FAERS Safety Report 18966975 (Version 1)
Quarter: 2021Q1

REPORT INFORMATION
  Report Type: Spontaneous
  Country: US (occurrence: US)
  Receive Date: 20210304
  Receipt Date: 20210304
  Transmission Date: 20210420
  Serious: Yes (Other)
  Sender: FDA-Public Use
  Company Number: US-DRREDDYS-USA/USA/21/0132587

PATIENT
  Age: 59 Year
  Sex: Female

DRUGS (2)
  1. GEMCITABINE. [Suspect]
     Active Substance: GEMCITABINE
     Indication: UTERINE LEIOMYOSARCOMA
  2. DOCETAXEL. [Suspect]
     Active Substance: DOCETAXEL
     Indication: UTERINE LEIOMYOSARCOMA

REACTIONS (1)
  - Neutropenia [Unknown]
